FAERS Safety Report 18679495 (Version 3)
Quarter: 2021Q2

REPORT INFORMATION
  Report Type: Spontaneous
  Country: NL (occurrence: NL)
  Receive Date: 20201230
  Receipt Date: 20210401
  Transmission Date: 20210717
  Serious: Yes (Other)
  Sender: FDA-Public Use
  Company Number: NL-BRISTOL-MYERS SQUIBB COMPANY-BMS-2020-110826

PATIENT
  Age: 63 Year
  Sex: Female

DRUGS (2)
  1. IPILIMUMAB [Suspect]
     Active Substance: IPILIMUMAB
     Indication: METASTATIC MALIGNANT MELANOMA
     Dosage: UNK
     Route: 065
     Dates: start: 202007, end: 202008
  2. NIVOLUMAB [Suspect]
     Active Substance: NIVOLUMAB
     Indication: METASTATIC MALIGNANT MELANOMA
     Dosage: UNAVAILABLE
     Route: 065
     Dates: start: 202007, end: 202008

REACTIONS (9)
  - Metastases to meninges [Unknown]
  - Metastases to central nervous system [Unknown]
  - Immune-mediated myocarditis [Unknown]
  - Blood lactate dehydrogenase increased [Unknown]
  - Cranial nerve disorder [Unknown]
  - Myasthenia gravis [Unknown]
  - Immune-mediated hepatitis [Unknown]
  - Immune-mediated myositis [Unknown]
  - Influenza [Recovered/Resolved]
